FAERS Safety Report 10994909 (Version 2)
Quarter: 2015Q2

REPORT INFORMATION
  Report Type: Spontaneous
  Country: FR (occurrence: FR)
  Receive Date: 20150407
  Receipt Date: 20150409
  Transmission Date: 20150821
  Serious: Yes (Other)
  Sender: FDA-Public Use
  Company Number: FR-TEVA-552832ISR

PATIENT
  Sex: Male

DRUGS (1)
  1. COPAXONE [Suspect]
     Active Substance: GLATIRAMER ACETATE
     Dosage: COPAXONE: 20 MG/ML, FOR 10 YEARS
     Route: 058

REACTIONS (3)
  - Product use issue [Unknown]
  - Multiple sclerosis relapse [Recovered/Resolved]
  - Secondary progressive multiple sclerosis [Unknown]
